FAERS Safety Report 12776062 (Version 1)
Quarter: 2016Q3

REPORT INFORMATION
  Report Type: Spontaneous
  Country: DE (occurrence: DE)
  Receive Date: 20160923
  Receipt Date: 20160923
  Transmission Date: 20161109
  Serious: Yes (Hospitalization, Other)
  Sender: FDA-Public Use
  Company Number: DE-UCBSA-2016035957

PATIENT
  Age: 45 Year
  Sex: Male
  Weight: 95 kg

DRUGS (3)
  1. METOPROLOL. [Suspect]
     Active Substance: METOPROLOL
     Indication: PRODUCT USED FOR UNKNOWN INDICATION
     Dosage: 475 MG, TOTAL, 10 TABLETS
     Dates: start: 20160918, end: 20160918
  2. ALLOPURINOL. [Suspect]
     Active Substance: ALLOPURINOL
     Indication: PRODUCT USED FOR UNKNOWN INDICATION
     Dosage: 3000 MG, TOTAL
     Dates: start: 20160918, end: 20160918
  3. KEPPRA [Suspect]
     Active Substance: LEVETIRACETAM
     Dosage: 10 DF, TOTAL 5000 MG
     Dates: start: 20160918, end: 20160918

REACTIONS (2)
  - Intentional overdose [Unknown]
  - Suicide attempt [Unknown]

NARRATIVE: CASE EVENT DATE: 20160918
